FAERS Safety Report 6974390-X (Version None)
Quarter: 2010Q3

REPORT INFORMATION
  Report Type: 
  Country: None (occurrence: None)
  Receive Date: 20100824
  Receipt Date: 20100714
  Transmission Date: 20110219
  Serious: No
  Sender: FDA-Public Use
  Company Number: 311994

PATIENT
  Age: 54 Year
  Sex: Female

DRUGS (2)
  1. VICTOZA [Suspect]
     Indication: TYPE 2 DIABETES MELLITUS
     Dosage: SUBCUTANOUS; SUBCUTANEOUS
     Route: 058
     Dates: start: 20100711
  2. VICTOZA [Suspect]
     Indication: TYPE 2 DIABETES MELLITUS
     Dosage: SUBCUTANOUS; SUBCUTANEOUS
     Route: 058
     Dates: start: 20100713

REACTIONS (3)
  - DRUG DOSE OMISSION [None]
  - MALAISE [None]
  - NAUSEA [None]
